FAERS Safety Report 9034437 (Version 1)
Quarter: 2013Q2

REPORT INFORMATION
  Report Type: Spontaneous
  Country: US (occurrence: None)
  Receive Date: 20130116
  Receipt Date: 20130116
  Transmission Date: 20140414
  Serious: Yes (Hospitalization)
  Sender: FDA-Public Use
  Company Number: None

PATIENT
  Age: 23 Year
  Sex: Male
  Weight: 87.09 kg

DRUGS (2)
  1. LAMOTRIGINE [Suspect]
     Dosage: 100MG  TAKE 8 TABS TWICE A DAY
     Dates: start: 20121211
  2. LAMOTRIGINE [Suspect]
     Dosage: 100MG  TAKE 8 TABS TWICE A DAY
     Dates: start: 20121211

REACTIONS (1)
  - No adverse event [None]
